FAERS Safety Report 9868197 (Version 3)
Quarter: 2014Q1

REPORT INFORMATION
  Report Type: Spontaneous
  Country: ES (occurrence: ES)
  Receive Date: 20140204
  Receipt Date: 20140327
  Transmission Date: 20141002
  Serious: Yes (Hospitalization)
  Sender: FDA-Public Use
  Company Number: PHHY2014ES011920

PATIENT
  Age: 3 Year
  Sex: Male

DRUGS (2)
  1. VOTUBIA [Suspect]
     Indication: ASTROCYTOMA, LOW GRADE
     Dosage: 5 MG, QD
     Route: 048
     Dates: start: 201303
  2. ANTIEPILEPTICS [Concomitant]
     Indication: EPILEPSY

REACTIONS (7)
  - Convulsion [Recovering/Resolving]
  - Pneumonia aspiration [Recovered/Resolved with Sequelae]
  - Aspiration bronchial [Not Recovered/Not Resolved]
  - Superinfection [Recovered/Resolved with Sequelae]
  - Influenza A virus test positive [Unknown]
  - Nasopharyngitis [Unknown]
  - Respiratory depression [Recovering/Resolving]
